FAERS Safety Report 21475775 (Version 3)
Quarter: 2022Q4

REPORT INFORMATION
  Report Type: Spontaneous
  Country: JP (occurrence: JP)
  Receive Date: 20221019
  Receipt Date: 20221220
  Transmission Date: 20230112
  Serious: Yes (Other)
  Sender: FDA-Public Use
  Company Number: JP-NOVARTISPH-NVSJ2022JP098852

PATIENT
  Age: 88 Year
  Sex: Male

DRUGS (1)
  1. BEOVU [Suspect]
     Active Substance: BROLUCIZUMAB-DBLL
     Indication: Age-related macular degeneration
     Dosage: 6 MG
     Route: 031
     Dates: start: 20220818, end: 20220818

REACTIONS (5)
  - Retinal perivascular sheathing [Recovered/Resolved]
  - Visual acuity reduced transiently [Recovered/Resolved]
  - Vitreous opacities [Recovered/Resolved]
  - Anterior chamber cell [Recovered/Resolved]
  - Vision blurred [Unknown]

NARRATIVE: CASE EVENT DATE: 20220915
